FAERS Safety Report 7764674-X (Version None)
Quarter: 2011Q3

REPORT INFORMATION
  Report Type: 
  Country: None (occurrence: None)
  Receive Date: 20110921
  Receipt Date: 20110919
  Transmission Date: 20111222
  Serious: Yes (Death, Hospitalization, Other)
  Sender: FDA-Public Use
  Company Number: PHEH2011US04649

PATIENT
  Sex: Male

DRUGS (2)
  1. GLEEVEC [Suspect]
     Indication: CHRONIC MYELOID LEUKAEMIA
     Dosage: 400 MG, BID
     Route: 048
     Dates: start: 20110519
  2. GLEEVEC [Suspect]
     Indication: GASTRIC CANCER

REACTIONS (7)
  - RENAL FAILURE ACUTE [None]
  - HEPATIC FAILURE [None]
  - HYDRONEPHROSIS [None]
  - NEOPLASM MALIGNANT [None]
  - PLEURAL EFFUSION [None]
  - RESPIRATORY FAILURE [None]
  - NEOPLASM PROGRESSION [None]
